FAERS Safety Report 8776007 (Version 1)
Quarter: 2012Q4

REPORT INFORMATION
  Report Type: 
  Country: FR (occurrence: FR)
  Receive Date: 20120910
  Receipt Date: 20120910
  Transmission Date: 20130627
  Serious: Yes (Hospitalization)
  Sender: FDA-Public Use
  Company Number: FR-B.I. PHARMACEUTICALS,INC./RIDGEFIELD-2012-FF-01171FF

PATIENT
  Sex: Male
  Weight: 147 kg

DRUGS (1)
  1. PRADAXA [Suspect]
     Indication: ATRIAL FIBRILLATION
     Route: 048
     Dates: start: 20120601, end: 20120720

REACTIONS (3)
  - Cardiac failure [Unknown]
  - Drug level increased [Recovered/Resolved]
  - No adverse event [Recovered/Resolved]
